FAERS Safety Report 6403503-3 (Version None)
Quarter: 2009Q4

REPORT INFORMATION
  Report Type: 
  Country: None (occurrence: None)
  Receive Date: 20091015
  Receipt Date: 20091015
  Transmission Date: 20100525
  Serious: Yes (Hospitalization, Other)
  Sender: FDA-Public Use
  Company Number: None

PATIENT
  Age: 62 Year
  Sex: Male
  Weight: 90.7194 kg

DRUGS (1)
  1. LEVAQUIN [Suspect]
     Indication: CYST
     Dosage: 2 DAILY PO
     Route: 048
     Dates: start: 20090729, end: 20090805

REACTIONS (4)
  - CHILLS [None]
  - DRUG INEFFECTIVE [None]
  - GENITAL RASH [None]
  - HYPOAESTHESIA [None]
